FAERS Safety Report 25944424 (Version 1)
Quarter: 2025Q4

REPORT INFORMATION
  Report Type: Spontaneous
  Country: GB (occurrence: GB)
  Receive Date: 20251021
  Receipt Date: 20251021
  Transmission Date: 20260117
  Serious: Yes (Hospitalization)
  Sender: ACCORD
  Company Number: GB-Accord-509402

PATIENT
  Age: 62 Year
  Sex: Female

DRUGS (7)
  1. CAPECITABINE [Suspect]
     Active Substance: CAPECITABINE
     Indication: Breast cancer recurrent
     Dosage: AT A REDUCED DOSE OF 50%
     Dates: start: 2024, end: 2024
  2. CAPECITABINE [Suspect]
     Active Substance: CAPECITABINE
     Indication: Breast cancer recurrent
     Dosage: PRIOR TO STARTING CYCLE 4,
     Dates: start: 2024, end: 2024
  3. CAPECITABINE [Suspect]
     Active Substance: CAPECITABINE
     Indication: Hormone receptor positive breast cancer
     Dosage: AT A REDUCED DOSE OF 50%
     Dates: start: 2024, end: 2024
  4. CAPECITABINE [Suspect]
     Active Substance: CAPECITABINE
     Indication: HER2 negative breast cancer
     Dosage: AT A REDUCED DOSE OF 50%
     Dates: start: 2024, end: 2024
  5. CAPECITABINE [Suspect]
     Active Substance: CAPECITABINE
     Indication: Metastases to liver
     Dosage: AT A REDUCED DOSE OF 50%
     Dates: start: 2024, end: 2024
  6. CAPECITABINE [Suspect]
     Active Substance: CAPECITABINE
     Indication: Bone marrow infiltration
     Dosage: AT A REDUCED DOSE OF 50%
     Dates: start: 2024, end: 2024
  7. CAPECITABINE [Suspect]
     Active Substance: CAPECITABINE
     Indication: Malignant neoplasm progression
     Dosage: AT A REDUCED DOSE OF 50%
     Dates: start: 2024, end: 2024

REACTIONS (3)
  - Terminal ileitis [Recovered/Resolved]
  - Hypokalaemia [Recovered/Resolved]
  - Hypomagnesaemia [Recovered/Resolved]

NARRATIVE: CASE EVENT DATE: 20240101
